FAERS Safety Report 20683879 (Version 2)
Quarter: 2025Q3

REPORT INFORMATION
  Report Type: Spontaneous
  Country: US (occurrence: US)
  Receive Date: 20220407
  Receipt Date: 20250924
  Transmission Date: 20251020
  Serious: No
  Sender: TAKEDA
  Company Number: US-TAKEDA-2022TUS022409

PATIENT
  Sex: Female

DRUGS (5)
  1. TAKHZYRO [Suspect]
     Active Substance: LANADELUMAB-FLYO
     Indication: Hereditary angioedema
     Dosage: UNK UNK, Q2WEEKS
  2. TAKHZYRO [Suspect]
     Active Substance: LANADELUMAB-FLYO
     Dosage: UNK UNK, MONTHLY
  3. TAKHZYRO [Suspect]
     Active Substance: LANADELUMAB-FLYO
     Dosage: 300 MILLIGRAM, Q2WEEKS
  4. FIRAZYR [Suspect]
     Active Substance: ICATIBANT ACETATE
     Indication: Hereditary angioedema
  5. FIRAZYR [Suspect]
     Active Substance: ICATIBANT ACETATE

REACTIONS (1)
  - Hereditary angioedema [Unknown]

NARRATIVE: CASE EVENT DATE: 20220403
